FAERS Safety Report 5570385-1 (Version None)
Quarter: 2007Q4

REPORT INFORMATION
  Report Type: 
  Country: None (occurrence: None)
  Receive Date: 20071221
  Receipt Date: 20071218
  Transmission Date: 20080405
  Serious: Yes (Death)
  Sender: FDA-Public Use
  Company Number: JP-WYE-H01809807

PATIENT
  Sex: Female

DRUGS (21)
  1. MYLOTARG [Suspect]
     Indication: ACUTE MYELOID LEUKAEMIA RECURRENT
     Dosage: NOT PROVIDED
     Route: 041
     Dates: start: 20061106, end: 20061106
  2. MYLOTARG [Suspect]
     Route: 041
     Dates: start: 20061127, end: 20061127
  3. FUNGUARD [Concomitant]
     Route: 041
     Dates: start: 20060916, end: 20061113
  4. KYTRIL [Concomitant]
     Indication: PROPHYLAXIS
     Route: 041
     Dates: start: 20061106, end: 20061116
  5. ORGARAN [Concomitant]
     Indication: COAGULOPATHY
     Route: 042
     Dates: start: 20060915, end: 20061114
  6. ORGARAN [Concomitant]
     Route: 042
     Dates: start: 20061108, end: 20061114
  7. ORGARAN [Concomitant]
     Route: 042
     Dates: start: 20061120, end: 20061204
  8. CYANOCOBALAMIN [Concomitant]
     Indication: PROPHYLAXIS
     Route: 048
     Dates: start: 20050802, end: 20061202
  9. MUCOSTA [Concomitant]
     Indication: PROPHYLAXIS
     Route: 048
     Dates: start: 20050120, end: 20061206
  10. ZOLPIDEM TARTRATE [Concomitant]
     Indication: INSOMNIA
     Route: 048
     Dates: start: 20051003, end: 20061202
  11. OMEPRAL [Concomitant]
     Indication: PROPHYLAXIS
     Route: 048
     Dates: start: 20060921, end: 20061206
  12. NEUQUINON [Concomitant]
     Indication: PROPHYLAXIS
     Dosage: NOT PROVIDED
     Route: 048
     Dates: start: 20060926, end: 20061206
  13. FUNGIZONE [Concomitant]
     Indication: PROPHYLAXIS
     Dosage: NOT PROVIDED
     Route: 048
     Dates: start: 20060915, end: 20061206
  14. HEPARIN SODIUM [Concomitant]
     Indication: PROPHYLAXIS
     Route: 041
     Dates: start: 20061030, end: 20061208
  15. OMEGACIN [Concomitant]
     Route: 041
     Dates: start: 20061028, end: 20061107
  16. VANCOMYCIN [Concomitant]
     Route: 041
     Dates: start: 20061028, end: 20061113
  17. PAZUCROSS [Concomitant]
     Route: 041
     Dates: start: 20061107, end: 20061114
  18. TARGOCID [Concomitant]
     Route: 041
     Dates: start: 20061109, end: 20061128
  19. MORPHINE HCL ELIXIR [Concomitant]
     Indication: PAIN
     Route: 042
     Dates: start: 20061207, end: 20061211
  20. DALACIN-S [Concomitant]
     Route: 041
     Dates: start: 20061113, end: 20061117
  21. MAXIPIME [Concomitant]
     Route: 041
     Dates: start: 20060915

REACTIONS (4)
  - CONDITION AGGRAVATED [None]
  - FEBRILE NEUTROPENIA [None]
  - FUNGAEMIA [None]
  - SEPTIC SHOCK [None]
